FAERS Safety Report 7108146-4 (Version None)
Quarter: 2010Q4

REPORT INFORMATION
  Report Type: 
  Country: None (occurrence: None)
  Receive Date: 20101115
  Receipt Date: 20101115
  Transmission Date: 20110411
  Serious: Yes (Other)
  Sender: FDA-Public Use
  Company Number: None

PATIENT
  Age: 34 Year
  Sex: Female
  Weight: 74.8435 kg

DRUGS (3)
  1. KETOPROFEN [Suspect]
     Indication: RHEUMATOID ARTHRITIS
     Dosage: 1 CAPSULE 2X DAILY ORAL (047)
     Route: 048
     Dates: start: 20101030, end: 20101103
  2. .. [Concomitant]
  3. .. [Concomitant]

REACTIONS (9)
  - ABDOMINAL PAIN UPPER [None]
  - APHAGIA [None]
  - CHROMATURIA [None]
  - DEPRESSED LEVEL OF CONSCIOUSNESS [None]
  - FUNGAL INFECTION [None]
  - HEADACHE [None]
  - NAUSEA [None]
  - URINARY TRACT INFECTION [None]
  - WEIGHT DECREASED [None]
